FAERS Safety Report 6767278-0 (Version None)
Quarter: 2010Q2

REPORT INFORMATION
  Report Type: 
  Country: None (occurrence: None)
  Receive Date: 20100614
  Receipt Date: 20100604
  Transmission Date: 20101027
  Serious: Yes (Hospitalization, Other)
  Sender: FDA-Public Use
  Company Number: NL-MPIJNJ-2010-02982

PATIENT

DRUGS (3)
  1. VELCADE [Suspect]
     Indication: MULTIPLE MYELOMA
     Dosage: 2.5 MG, CYCLIC
     Route: 058
     Dates: start: 20090918, end: 20090925
  2. DEXAMETHASONE [Suspect]
     Indication: MULTIPLE MYELOMA
     Dosage: 10.667 MG, UNK
     Route: 048
  3. NADROPARIN [Concomitant]
     Indication: THROMBOSIS PROPHYLAXIS
     Dosage: 0.3 ML, UNK
     Route: 058

REACTIONS (3)
  - ORAL CANDIDIASIS [None]
  - PATHOLOGICAL FRACTURE [None]
  - WOUND INFECTION [None]
